FAERS Safety Report 5628226-X (Version None)
Quarter: 2008Q1

REPORT INFORMATION
  Report Type: 
  Country: None (occurrence: None)
  Receive Date: 20080131
  Receipt Date: 20071126
  Transmission Date: 20080703
  Serious: No
  Sender: FDA-Public Use
  Company Number: 163-21880-07111389

PATIENT
  Age: 66 Year
  Sex: Female

DRUGS (3)
  1. REVLIMID [Suspect]
     Indication: MULTIPLE MYELOMA
     Dosage: X21 DAYS EVERY 28 DAYS, ORAL; 10 MG, 1 IN 1 D, ORAL; 5 - 10MG DAILY, ORAL
     Route: 048
     Dates: start: 20061101, end: 20061201
  2. REVLIMID [Suspect]
     Indication: MULTIPLE MYELOMA
     Dosage: X21 DAYS EVERY 28 DAYS, ORAL; 10 MG, 1 IN 1 D, ORAL; 5 - 10MG DAILY, ORAL
     Route: 048
     Dates: start: 20061201, end: 20070101
  3. REVLIMID [Suspect]
     Indication: MULTIPLE MYELOMA
     Dosage: X21 DAYS EVERY 28 DAYS, ORAL; 10 MG, 1 IN 1 D, ORAL; 5 - 10MG DAILY, ORAL
     Route: 048
     Dates: start: 20070301, end: 20071101

REACTIONS (1)
  - ADVERSE EVENT [None]
